FAERS Safety Report 8044815-X (Version None)
Quarter: 2012Q1

REPORT INFORMATION
  Report Type: 
  Country: None (occurrence: None)
  Receive Date: 20120113
  Receipt Date: 20120106
  Transmission Date: 20120608
  Serious: Yes (Hospitalization, Other)
  Sender: FDA-Public Use
  Company Number: US-JNJFOC-20120102086

PATIENT
  Sex: Male
  Weight: 47.63 kg

DRUGS (6)
  1. RISPERDAL [Suspect]
     Route: 048
     Dates: start: 20110101, end: 20110101
  2. RISPERDAL [Suspect]
     Indication: ATTENTION DEFICIT/HYPERACTIVITY DISORDER
     Route: 048
     Dates: start: 20110101, end: 20110101
  3. INVEGA [Concomitant]
     Route: 048
     Dates: start: 20111101, end: 20111201
  4. RISPERDAL [Suspect]
     Route: 048
     Dates: start: 20110101, end: 20110101
  5. INVEGA [Concomitant]
     Indication: ATTENTION DEFICIT/HYPERACTIVITY DISORDER
     Route: 048
     Dates: start: 20111201
  6. OTHER THERAPEUTIC MEDICATION [Suspect]
     Indication: PRODUCT USED FOR UNKNOWN INDICATION
     Route: 065

REACTIONS (6)
  - AGGRESSION [None]
  - HUNGER [None]
  - OFF LABEL USE [None]
  - PALPITATIONS [None]
  - PRODUCT QUALITY ISSUE [None]
  - ABNORMAL FAECES [None]
